FAERS Safety Report 7905719-3 (Version None)
Quarter: 2011Q4

REPORT INFORMATION
  Report Type: 
  Country: None (occurrence: None)
  Receive Date: 20111108
  Receipt Date: 20111025
  Transmission Date: 20120403
  Serious: Yes (Life-Threatening)
  Sender: FDA-Public Use
  Company Number: JP-2011-11767

PATIENT
  Age: 60 Year
  Sex: Female

DRUGS (2)
  1. CELECOXIB [Concomitant]
  2. PLETAL [Suspect]
     Indication: ARTERIOSCLEROSIS OBLITERANS
     Dosage: ORAL
     Route: 048

REACTIONS (3)
  - FEELING ABNORMAL [None]
  - LEFT VENTRICLE OUTFLOW TRACT OBSTRUCTION [None]
  - CARDIAC MURMUR [None]
